FAERS Safety Report 5780849-3 (Version None)
Quarter: 2008Q2

REPORT INFORMATION
  Report Type: 
  Country: None (occurrence: None)
  Receive Date: 20080620
  Receipt Date: 20080609
  Transmission Date: 20081010
  Serious: Yes (Other)
  Sender: FDA-Public Use
  Company Number: KR-PFIZER INC-2008048856

PATIENT
  Sex: Female

DRUGS (1)
  1. NEURONTIN [Suspect]
     Route: 048

REACTIONS (7)
  - ANXIETY [None]
  - DRUG ADMINISTRATION ERROR [None]
  - FATIGUE [None]
  - INSOMNIA [None]
  - NAUSEA [None]
  - PAIN [None]
  - SURGERY [None]
